FAERS Safety Report 6648295-8 (Version None)
Quarter: 2010Q1

REPORT INFORMATION
  Report Type: 
  Country: None (occurrence: None)
  Receive Date: 20100318
  Receipt Date: 20100310
  Transmission Date: 20100710
  Serious: Yes (Hospitalization)
  Sender: FDA-Public Use
  Company Number: 1000012476

PATIENT
  Age: 80 Year

DRUGS (9)
  1. NEBIVOLOL HCL [Suspect]
     Dosage: ORAL
     Route: 048
     Dates: end: 20091229
  2. NEBIVOLOL HCL [Suspect]
     Dosage: ORAL
     Route: 048
  3. FLECAINIDE ACETATE [Suspect]
     Dates: start: 20091007, end: 20091229
  4. ALLOPURINOL [Concomitant]
  5. SEROPLEX [Concomitant]
  6. LEXOMIL [Concomitant]
  7. AXELER [Concomitant]
  8. METEOSPASMYL [Concomitant]
  9. . [Concomitant]

REACTIONS (3)
  - ACUTE PULMONARY OEDEMA [None]
  - CARDIAC FAILURE [None]
  - DRUG INTERACTION [None]
